FAERS Safety Report 7658374-4 (Version None)
Quarter: 2011Q3

REPORT INFORMATION
  Report Type: 
  Country: None (occurrence: None)
  Receive Date: 20110805
  Receipt Date: 20110725
  Transmission Date: 20111222
  Serious: Yes (Other)
  Sender: FDA-Public Use
  Company Number: US-JNJFOC-20110710809

PATIENT
  Sex: Female
  Weight: 57.61 kg

DRUGS (2)
  1. METRONIDAZOLE [Concomitant]
     Indication: PRODUCT USED FOR UNKNOWN INDICATION
  2. REMICADE [Suspect]
     Indication: CROHN'S DISEASE
     Route: 042
     Dates: start: 20040101, end: 20060101

REACTIONS (7)
  - ANAPHYLACTIC SHOCK [None]
  - COLON NEOPLASM [None]
  - DRUG INEFFECTIVE [None]
  - INTESTINAL FISTULA [None]
  - INFUSION RELATED REACTION [None]
  - FAECAL INCONTINENCE [None]
  - MUSCLE SPASMS [None]
